FAERS Safety Report 6555364-X (Version None)
Quarter: 2010Q1

REPORT INFORMATION
  Report Type: 
  Country: None (occurrence: None)
  Receive Date: 20100128
  Receipt Date: 20090714
  Transmission Date: 20100710
  Serious: No
  Sender: FDA-Public Use
  Company Number: A0798006A

PATIENT
  Sex: Male

DRUGS (1)
  1. WELLBUTRIN SR [Suspect]
     Indication: DRUG USE FOR UNKNOWN INDICATION
     Dosage: 150MG UNKNOWN
     Route: 065

REACTIONS (2)
  - FLUID RETENTION [None]
  - TREMOR [None]
